FAERS Safety Report 14940378 (Version 2)
Quarter: 2018Q2

REPORT INFORMATION
  Report Type: Spontaneous
  Country: AE (occurrence: AE)
  Receive Date: 20180525
  Receipt Date: 20180607
  Transmission Date: 20180711
  Serious: Yes (Hospitalization, Other)
  Sender: FDA-Public Use
  Company Number: AE-ALEMBIC PHARMACUETICALS LIMITED-2018SCAL000365

PATIENT

DRUGS (6)
  1. METRONIDAZOLE. [Suspect]
     Active Substance: METRONIDAZOLE
     Indication: BRAIN ABSCESS
     Dosage: 500 MILLIGRAM EVERY 8 HOUR FOR 10 WEEKS
     Route: 042
  2. CEFTRIAXONE. [Concomitant]
     Active Substance: CEFTRIAXONE
     Indication: BRAIN ABSCESS
     Dosage: 2 GRAM FOR 5 WEEKS
  3. VANCOMYCIN [Concomitant]
     Active Substance: VANCOMYCIN
     Indication: BRAIN ABSCESS
     Dosage: FOR 7 WEEKS
  4. DEXAMETHASONE. [Concomitant]
     Active Substance: DEXAMETHASONE
     Indication: BRAIN ABSCESS
     Dosage: 6 MILLIGRAM
  5. DEXAMETHASONE. [Concomitant]
     Active Substance: DEXAMETHASONE
     Dosage: 4 MILLIGRAM
  6. LEVETIRACETAM. [Concomitant]
     Active Substance: LEVETIRACETAM
     Indication: BRAIN ABSCESS
     Dosage: 500 MILLIGRAM, BID

REACTIONS (8)
  - Neurotoxicity [Recovering/Resolving]
  - Dysphagia [Recovering/Resolving]
  - Burning sensation [Recovering/Resolving]
  - Ataxia [Recovering/Resolving]
  - Toxic encephalopathy [Recovering/Resolving]
  - Dysphonia [Recovering/Resolving]
  - Dysarthria [Recovering/Resolving]
  - Balance disorder [Recovering/Resolving]
